FAERS Safety Report 6545078-4 (Version None)
Quarter: 2010Q1

REPORT INFORMATION
  Report Type: 
  Country: None (occurrence: None)
  Receive Date: 20100121
  Receipt Date: 20100119
  Transmission Date: 20100710
  Serious: Yes (Life-Threatening, Hospitalization)
  Sender: FDA-Public Use
  Company Number: DE-SANOFI-AVENTIS-2009SA008102

PATIENT
  Age: 66 Year
  Sex: Female

DRUGS (9)
  1. PREDNISOLONE [Suspect]
     Route: 048
     Dates: start: 20080101
  2. DICLOFENAC SODIUM [Suspect]
     Route: 048
     Dates: start: 20080101
  3. OXALIPLATIN [Suspect]
     Route: 041
     Dates: start: 20090101, end: 20090101
  4. OXALIPLATIN [Suspect]
     Route: 041
     Dates: start: 20090914, end: 20090914
  5. BEVACIZUMAB [Suspect]
     Route: 041
     Dates: start: 20090914, end: 20090914
  6. BEVACIZUMAB [Suspect]
     Route: 041
     Dates: start: 20091012, end: 20091012
  7. CAPECITABINE [Suspect]
     Route: 048
     Dates: start: 20090914, end: 20091018
  8. OMEPRAZOLE [Concomitant]
  9. CYCLOSPORINE [Concomitant]

REACTIONS (4)
  - ABDOMINAL PAIN [None]
  - FLATULENCE [None]
  - INTESTINAL PERFORATION [None]
  - PERITONITIS [None]
